FAERS Safety Report 6690127-6 (Version None)
Quarter: 2010Q2

REPORT INFORMATION
  Report Type: 
  Country: None (occurrence: None)
  Receive Date: 20100421
  Receipt Date: 20100416
  Transmission Date: 20101027
  Serious: Yes (Death, Hospitalization, Other)
  Sender: FDA-Public Use
  Company Number: PHEH2009US04127

PATIENT
  Sex: Male
  Weight: 79.7 kg

DRUGS (21)
  1. EXJADE [Suspect]
     Indication: MYELODYSPLASTIC SYNDROME
     Dosage: 1500 MG, QD
     Route: 048
     Dates: start: 20090101
  2. EXJADE [Suspect]
     Indication: IRON OVERLOAD
     Dosage: 2000 MG DAILY
     Route: 048
     Dates: start: 20090101
  3. EXJADE [Suspect]
     Dosage: 500 MG, BID
     Route: 048
  4. EXJADE [Suspect]
     Dosage: UNK
     Route: 048
     Dates: end: 20100201
  5. ASPIRIN [Concomitant]
     Indication: CORONARY ARTERY DISEASE
     Dosage: 81 MG, QD
     Route: 048
  6. LASIX [Concomitant]
     Indication: HYPERTENSION
     Dosage: 20 MEQ/KG, QD
     Route: 048
  7. LASIX [Concomitant]
     Indication: OEDEMA
     Dosage: 40 MG, BID
     Route: 048
  8. LASIX [Concomitant]
     Dosage: NO TREATMENT
  9. LASIX [Concomitant]
     Dosage: UNK
  10. PROPRANOLOL [Concomitant]
     Indication: VARICES OESOPHAGEAL
     Dosage: UNK
     Route: 048
  11. MOTRIN [Concomitant]
     Dosage: PRN PAIN
     Route: 048
  12. ALDACTONE [Concomitant]
     Indication: OEDEMA
     Dosage: 150 MG, QD
     Route: 048
  13. ALDACTONE [Concomitant]
     Dosage: 100 MG
  14. ALDACTONE [Concomitant]
     Dosage: 50 MG
  15. POTASSIUM CHLORIDE [Concomitant]
     Indication: ELECTROLYTE SUBSTITUTION THERAPY
     Dosage: 8 MEQ, QD
     Route: 048
  16. SYNTHROID [Concomitant]
     Indication: HYPOTHYROIDISM
     Dosage: 50 MCG, QD
     Route: 048
  17. PRILOSEC [Concomitant]
     Indication: VARICES OESOPHAGEAL
     Dosage: 40 MG, QD
     Route: 048
  18. VITAMIN B COMPLEX CAP [Concomitant]
     Indication: SUPPLEMENTATION THERAPY
     Dosage: ONE TAB, QD
     Route: 048
  19. FISH OIL [Concomitant]
     Indication: SUPPLEMENTATION THERAPY
     Dosage: ONE TAB, QD
     Route: 048
  20. GLUCOSAMINE [Concomitant]
     Indication: SUPPLEMENTATION THERAPY
     Dosage: ONE TAB, QD
     Route: 048
  21. VITAMIN D [Concomitant]
     Dosage: 50000 U, UNK

REACTIONS (12)
  - ABDOMINAL DISTENSION [None]
  - ASCITES [None]
  - BLOOD ALBUMIN DECREASED [None]
  - BLOOD CREATININE INCREASED [None]
  - DEATH [None]
  - FAECES DISCOLOURED [None]
  - FATIGUE [None]
  - HAEMORRHAGE [None]
  - HYPOTENSION [None]
  - IRON OVERLOAD [None]
  - NEUTROPHIL COUNT DECREASED [None]
  - OEDEMA [None]
